FAERS Safety Report 12674301 (Version 1)
Quarter: 2016Q3

REPORT INFORMATION
  Report Type: Spontaneous
  Country: US (occurrence: US)
  Receive Date: 20160822
  Receipt Date: 20160822
  Transmission Date: 20161109
  Serious: No
  Sender: FDA-Public Use
  Company Number: US-PSKUSFDA-2015-US-0120

PATIENT
  Age: 56 Year
  Sex: Female
  Weight: 87.54 kg

DRUGS (1)
  1. SANCUSO [Suspect]
     Active Substance: GRANISETRON
     Indication: IMPAIRED GASTRIC EMPTYING
     Dosage: PATCH APPLIED EVERY 5-7 DAYS
     Dates: start: 201501, end: 201505

REACTIONS (4)
  - Drug ineffective for unapproved indication [Unknown]
  - Drug administered at inappropriate site [Recovered/Resolved]
  - Product adhesion issue [Unknown]
  - Product use issue [Recovered/Resolved]

NARRATIVE: CASE EVENT DATE: 201501
